FAERS Safety Report 16900038 (Version 3)
Quarter: 2019Q4

REPORT INFORMATION
  Report Type: Report from Study
  Country: US (occurrence: US)
  Receive Date: 20191009
  Receipt Date: 20191105
  Transmission Date: 20200122
  Serious: Yes (Other)
  Sender: FDA-Public Use
  Company Number: US-GILEAD-2019-0432124

PATIENT
  Age: 57 Year
  Sex: Female

DRUGS (14)
  1. XARELTO [Concomitant]
     Active Substance: RIVAROXABAN
  2. ESZOPICLONE. [Concomitant]
     Active Substance: ESZOPICLONE
  3. PANTOPRAZOLE SODIUM. [Concomitant]
     Active Substance: PANTOPRAZOLE SODIUM
  4. BACTRIM [Concomitant]
     Active Substance: SULFAMETHOXAZOLE\TRIMETHOPRIM
  5. HYDROXYZINE [Concomitant]
     Active Substance: HYDROXYZINE HYDROCHLORIDE
  6. BACLOFEN. [Concomitant]
     Active Substance: BACLOFEN
  7. NASONEX [Concomitant]
     Active Substance: MOMETASONE FUROATE
  8. SYMBICORT [Concomitant]
     Active Substance: BUDESONIDE\FORMOTEROL FUMARATE DIHYDRATE
  9. OXYCODONE [Concomitant]
     Active Substance: OXYCODONE
  10. IDELALISIB [Suspect]
     Active Substance: IDELALISIB
     Indication: B-CELL LYMPHOMA
     Dosage: 150 MG, BID
     Route: 048
     Dates: start: 20161210
  11. PRAZOSIN. [Concomitant]
     Active Substance: PRAZOSIN
  12. NITROSTAT [Concomitant]
     Active Substance: NITROGLYCERIN
  13. ALBUTEROL [SALBUTAMOL] [Concomitant]
     Active Substance: ALBUTEROL
  14. PLAQUENIL [Concomitant]
     Active Substance: HYDROXYCHLOROQUINE SULFATE

REACTIONS (4)
  - Condition aggravated [Unknown]
  - Non-Hodgkin^s lymphoma metastatic [Unknown]
  - Drug ineffective [Unknown]
  - Fatigue [Unknown]
